FAERS Safety Report 13928617 (Version 1)
Quarter: 2017Q3

REPORT INFORMATION
  Report Type: Spontaneous
  Country: US (occurrence: US)
  Receive Date: 20170901
  Receipt Date: 20170901
  Transmission Date: 20171127
  Serious: Yes (Hospitalization, Other)
  Sender: FDA-Public Use
  Company Number: US-PFIZER INC-2017373085

PATIENT
  Age: 76 Year
  Sex: Male
  Weight: 165 kg

DRUGS (1)
  1. SUTENT [Suspect]
     Active Substance: SUNITINIB MALATE
     Indication: NEOPLASM MALIGNANT
     Dosage: 25 MG, 1X/DAY  4 WEEKS ON AND 2 WEEKS OFF

REACTIONS (3)
  - Clostridium difficile infection [Unknown]
  - Clostridium difficile infection [Not Recovered/Not Resolved]
  - Gastrointestinal haemorrhage [Recovered/Resolved]

NARRATIVE: CASE EVENT DATE: 2017
